FAERS Safety Report 20377971 (Version 1)
Quarter: 2022Q1

REPORT INFORMATION
  Report Type: Spontaneous
  Country: US (occurrence: US)
  Receive Date: 20220126
  Receipt Date: 20220126
  Transmission Date: 20220423
  Serious: No
  Sender: FDA-Public Use
  Company Number: US-ALLERGAN-2138803US

PATIENT

DRUGS (2)
  1. UBRELVY [Suspect]
     Active Substance: UBROGEPANT
     Indication: Migraine
     Dosage: 100 MG, TID
  2. UBRELVY [Suspect]
     Active Substance: UBROGEPANT
     Dosage: 100 MG, PRN

REACTIONS (2)
  - Off label use [Unknown]
  - Drug ineffective [Unknown]
